FAERS Safety Report 9243158 (Version 1)
Quarter: 2013Q2

REPORT INFORMATION
  Report Type: Spontaneous
  Country: JP (occurrence: JP)
  Receive Date: 20130419
  Receipt Date: 20130419
  Transmission Date: 20140414
  Serious: Yes (Disabling)
  Sender: FDA-Public Use
  Company Number: JP-B.I. PHARMACEUTICALS,INC./RIDGEFIELD-2013-BI-10425YA

PATIENT
  Age: 81 Year
  Sex: Male
  Weight: 58.6 kg

DRUGS (8)
  1. TAMSULOSIN [Suspect]
     Route: 048
     Dates: start: 20121129
  2. MIRAGEGRON [Suspect]
     Indication: HYPERTONIC BLADDER
     Dosage: 50 MG
     Route: 048
     Dates: start: 20121205, end: 20130307
  3. PLETAAL [Concomitant]
  4. TAKEPRON [Concomitant]
  5. AMLODIN [Concomitant]
  6. DIOVAN [Concomitant]
  7. SUNRYTHM [Concomitant]
  8. LENDORMIN [Concomitant]

REACTIONS (2)
  - Interstitial lung disease [Not Recovered/Not Resolved]
  - Respiratory failure [None]
